FAERS Safety Report 5763923-7 (Version None)
Quarter: 2008Q2

REPORT INFORMATION
  Report Type: 
  Country: None (occurrence: None)
  Receive Date: 20080606
  Receipt Date: 20080606
  Transmission Date: 20081010
  Serious: No
  Sender: FDA-Public Use
  Company Number: None

PATIENT
  Age: 28 Year
  Sex: Female
  Weight: 63.5036 kg

DRUGS (1)
  1. CHANTIX [Suspect]
     Dosage: TWICE A DAY
     Dates: start: 20080215, end: 20080409

REACTIONS (3)
  - ASTHENIA [None]
  - CRYING [None]
  - DEPRESSED MOOD [None]
